FAERS Safety Report 6938104-1 (Version None)
Quarter: 2010Q3

REPORT INFORMATION
  Report Type: 
  Country: None (occurrence: None)
  Receive Date: 20100817
  Receipt Date: 20100802
  Transmission Date: 20110219
  Serious: Yes (Hospitalization)
  Sender: FDA-Public Use
  Company Number: FKO201000304

PATIENT
  Age: 64 Year
  Sex: Female

DRUGS (18)
  1. FLUOROURACIL [Suspect]
     Indication: COLORECTAL CANCER
     Dosage: INTRAVENOUS DRIP
     Route: 041
     Dates: start: 20090210, end: 20090212
  2. FLUOROURACIL [Suspect]
     Indication: COLORECTAL CANCER
     Dosage: INTRAVENOUS DRIP
     Route: 041
     Dates: start: 20090421, end: 20090423
  3. OXALIPLATIN [Suspect]
     Indication: COLORECTAL CANCER
     Dosage: INTRAVENOUS DRIP
     Route: 041
     Dates: start: 20090210, end: 20090210
  4. OXALIPLATIN [Suspect]
     Indication: COLORECTAL CANCER
     Dosage: INTRAVENOUS DRIP
     Route: 041
     Dates: start: 20090421, end: 20090421
  5. ATORVASTATIN (ATORVASTATIN) (ATORVASTATIN) [Concomitant]
  6. CINCHOCAINE HYDROCHLORIDE (CINCHOCAINE HYDROCHLORIDE) (CINCHOCAINE HYD [Concomitant]
  7. DOMPERIDONE (DOMPERIDONE) (DOMPERIDONE) [Concomitant]
  8. FELODIPINE (FELODIPINE) (FELODIPINE) [Concomitant]
  9. HYDROCORTISONE (HYDROCORTISONE) (HYDROCORTISONE) [Concomitant]
  10. LANSOPRAZOLE [Concomitant]
  11. LOSARTAN (LOSARTAN) (LOSARTAN) [Concomitant]
  12. MAGNESIUM SALICYLATE (MAGNESIUM SALICYLATE) (MAGNESIUM SALICYLATE) [Concomitant]
  13. MOVICOL (NULYTELY) (NULYTELY) [Concomitant]
  14. ORAMORPH (MORPHINE SULFATE) (MORPHINE SULFATE) [Concomitant]
  15. OXYCONTIN (OXYCODONE HYDROCHLORIDE) (OXYCODONE HYDROCHLORIDE) [Concomitant]
  16. OXYNORM (OXYCODONE HYDROCHLORIDE) (OXYCODONE HYDROCHLORIDE) [Concomitant]
  17. PARACETAMOL (PARACETAMOL) (PARACETAMOL) [Concomitant]
  18. SENOKOT (SENNA ALEXANDRINA) (SENNA ALEXANDRINA) [Concomitant]

REACTIONS (2)
  - ANAEMIA [None]
  - KLEBSIELLA SEPSIS [None]
